FAERS Safety Report 22232458 (Version 1)
Quarter: 2023Q2

REPORT INFORMATION
  Report Type: Spontaneous
  Country: US (occurrence: None)
  Receive Date: 20230420
  Receipt Date: 20230420
  Transmission Date: 20230721
  Serious: No
  Sender: FDA-Public Use
  Company Number: US-ROCHE-3126475

PATIENT
  Sex: Female

DRUGS (2)
  1. ESBRIET [Suspect]
     Active Substance: PIRFENIDONE
     Indication: Pulmonary fibrosis
     Dosage: TAKE 1 TABLET 3 TIMES A DAY FOR 7 DAYS, THEN TAKE 2 TABLETS 3 TIMES A DAY FOR 7 DAYS, THEN TAKE 3 TA
     Route: 048
     Dates: start: 20220527
  2. OFEV [Concomitant]
     Active Substance: NINTEDANIB
     Dates: end: 202205

REACTIONS (2)
  - Headache [Recovered/Resolved]
  - Sinus disorder [Unknown]
